FAERS Safety Report 24712476 (Version 1)
Quarter: 2024Q4

REPORT INFORMATION
  Report Type: Spontaneous
  Country: US (occurrence: None)
  Receive Date: 20241207
  Receipt Date: 20241207
  Transmission Date: 20250115
  Serious: Yes (Hospitalization)
  Sender: Public
  Company Number: None

PATIENT
  Age: 80 Year
  Sex: Female
  Weight: 83.25 kg

DRUGS (1)
  1. MYRBETRIQ [Suspect]
     Active Substance: MIRABEGRON
     Indication: Incontinence
     Dosage: OTHER QUANTITY : 1 TABLET(S);?
     Route: 048
     Dates: start: 20240406, end: 20240406

REACTIONS (8)
  - Urticaria [None]
  - Therapy cessation [None]
  - Pharyngeal swelling [None]
  - Eyelid ptosis [None]
  - Dysphagia [None]
  - Swelling of eyelid [None]
  - Diplopia [None]
  - Eye pruritus [None]

NARRATIVE: CASE EVENT DATE: 20240422
